FAERS Safety Report 19205156 (Version 4)
Quarter: 2021Q2

REPORT INFORMATION
  Report Type: Report from Study
  Country: KR (occurrence: KR)
  Receive Date: 20210503
  Receipt Date: 20210520
  Transmission Date: 20210717
  Serious: Yes (Death, Hospitalization, Other)
  Sender: FDA-Public Use
  Company Number: KR-PFIZER INC-2021427976

PATIENT
  Age: 52 Year
  Sex: Male
  Weight: 48.9 kg

DRUGS (2)
  1. PF?06463922 [Suspect]
     Active Substance: LORLATINIB
     Indication: NON-SMALL CELL LUNG CANCER
     Dosage: 100 MG, 1X/DAY
     Route: 048
     Dates: start: 20210304, end: 20210418
  2. SOLONDO [Concomitant]
     Active Substance: PREDNISOLONE
     Indication: CARDIAC TAMPONADE
     Dosage: 15 MG, 1X/DAY
     Route: 048
     Dates: start: 20210225, end: 20210418

REACTIONS (11)
  - Liver function test increased [Unknown]
  - Blood osmolarity increased [Unknown]
  - Dyspnoea [Unknown]
  - Cardiac tamponade [Recovered/Resolved]
  - Blood lactate dehydrogenase increased [Unknown]
  - C-reactive protein increased [Unknown]
  - Troponin I increased [Unknown]
  - Platelet count decreased [Unknown]
  - White blood cell count increased [Unknown]
  - Blood creatine phosphokinase increased [Unknown]
  - Neutrophil count increased [Unknown]

NARRATIVE: CASE EVENT DATE: 20210414
